FAERS Safety Report 9795875 (Version 2)
Quarter: 2014Q1

REPORT INFORMATION
  Report Type: Report from Study
  Country: AU (occurrence: AU)
  Receive Date: 20140103
  Receipt Date: 20140219
  Transmission Date: 20141002
  Serious: Yes (Death, Hospitalization)
  Sender: FDA-Public Use
  Company Number: PHHY2014AU000483

PATIENT
  Sex: Female

DRUGS (19)
  1. ACLASTA [Suspect]
     Dosage: 5 MG/100 ML
     Route: 042
     Dates: start: 20130130
  2. THIAMINE HYDROCHLORIDE [Concomitant]
     Dosage: 1 DF, UNK
     Route: 048
     Dates: start: 20101210
  3. SUMATRIPTAN [Concomitant]
     Dosage: 1 DF, UNK
     Route: 048
     Dates: start: 20130523
  4. SEROQUEL [Concomitant]
     Dosage: 25 MG, 1 AT NIGHT
     Route: 048
     Dates: start: 20121129
  5. SEROQUEL [Concomitant]
     Dosage: 200 MG, 1 AT NIGHT
     Route: 048
     Dates: start: 20121220
  6. PERINDOPRIL ERBUMINE [Concomitant]
     Dosage: 1 DF, UNK
     Route: 048
     Dates: start: 20130426
  7. PARACETAMOL [Concomitant]
     Dosage: 1 DF, TID
     Dates: start: 20120720
  8. PANTOPRAZOLE [Concomitant]
     Dosage: 2 DF, UNK
     Dates: start: 20130426
  9. OXAZEPAM [Concomitant]
     Dosage: 0.5 DF, BID
     Dates: start: 20130524
  10. OVESTIN [Concomitant]
     Dosage: 1 MG/G AT NIGHT
     Route: 067
     Dates: start: 20110308
  11. OSTEVIT-D [Concomitant]
     Dosage: 1 DF, DAILY HOLD
     Dates: start: 20080528
  12. MIRTAZAPINE [Concomitant]
     Dosage: 2 DF, AT NIGHT
     Dates: start: 20121220
  13. MAGMIN [Concomitant]
     Dosage: 2 DF, UNK
     Route: 048
     Dates: start: 20101123
  14. LYRICA [Concomitant]
     Dosage: 150 MG, 1 TWICE A DAY AND 2 NOCTE
     Route: 048
     Dates: start: 20130507
  15. FENTANYL [Concomitant]
     Dosage: 25 MCG/H 1 IN 3 D DAILY AND 12 MCG/H
     Route: 062
     Dates: start: 20130523
  16. DOMPERIDONE [Concomitant]
     Dosage: 1 DF, QID
     Route: 048
     Dates: start: 20130523
  17. CREON [Concomitant]
     Dosage: 10,000 BP UNITS/8000 BP UNITS/600 PH. EUR. UNITS
     Route: 048
     Dates: start: 20121011
  18. CENTRUM SELECT 50+ [Concomitant]
     Dosage: 1 DF, UNK
     Route: 048
     Dates: start: 20101123
  19. CLONAZEPAM [Concomitant]
     Dosage: 0.5 DF AT NIGHT
     Route: 048
     Dates: start: 20130426

REACTIONS (11)
  - Atypical pneumonia [Fatal]
  - Respiratory failure [Unknown]
  - Septic shock [Unknown]
  - Major depression [Unknown]
  - Plasma cell myeloma [Unknown]
  - Chronic obstructive pulmonary disease [Unknown]
  - Depressed level of consciousness [Unknown]
  - Acute respiratory distress syndrome [Unknown]
  - Cyanosis [Unknown]
  - Dyspnoea [Unknown]
  - Sepsis [Unknown]
